FAERS Safety Report 9013457 (Version 1)
Quarter: 2013Q1

REPORT INFORMATION
  Report Type: Report from Study
  Country: FR (occurrence: FR)
  Receive Date: 20130114
  Receipt Date: 20130114
  Transmission Date: 20140127
  Serious: Yes (Other)
  Sender: FDA-Public Use
  Company Number: FR-PFIZER INC-2013010796

PATIENT
  Age: 76 Year
  Sex: Female
  Weight: 95 kg

DRUGS (2)
  1. TORISEL [Suspect]
     Indication: MANTLE CELL LYMPHOMA
     Dosage: 175 TO 75 MG, WEEKLY
     Dates: start: 20110304, end: 20110726
  2. LOVENOX [Suspect]
     Dosage: UNK

REACTIONS (10)
  - Pneumocystis jirovecii pneumonia [Unknown]
  - Decreased appetite [Unknown]
  - Weight decreased [Unknown]
  - Epistaxis [Unknown]
  - Anal fissure [Unknown]
  - Paronychia [Unknown]
  - Burning sensation [Unknown]
  - Lip ulceration [Unknown]
  - Skin ulcer [Unknown]
  - Rash [Unknown]
